FAERS Safety Report 5268680-9 (Version None)
Quarter: 2007Q1

REPORT INFORMATION
  Report Type: 
  Country: None (occurrence: None)
  Receive Date: 20070313
  Receipt Date: 20070305
  Transmission Date: 20070707
  Serious: Yes (Death, Hospitalization)
  Sender: FDA-Public Use
  Company Number: 15496

PATIENT
  Age: 78 Year
  Sex: Male

DRUGS (12)
  1. CYTARABINE [Suspect]
     Indication: ACUTE MYELOID LEUKAEMIA
     Dosage: 36 MG PER_CYCLE SC
     Route: 058
     Dates: start: 20061204, end: 20061213
  2. TRANSEXAMIC ACID [Concomitant]
  3. RANITIDINE [Concomitant]
  4. ALTACE. MFR:  NOT SPECIFIED [Concomitant]
  5. TEMAZEPAM [Concomitant]
  6. COVERSYL /00790701/ [Concomitant]
  7. GARASONE [Concomitant]
  8. TYLENOL /00020001/. MFR:  NOT SPECIFIED [Concomitant]
  9. LIPITOR /01326101/. MFR:  NOT SPECIFIED [Concomitant]
  10. FLUCONAZOLE [Concomitant]
  11. NYSTATIN/LIDOCAINE 2% [Concomitant]
  12. NYSTATIN/LIDOCAINE 2% [Concomitant]

REACTIONS (8)
  - AGITATION [None]
  - ANAEMIA [None]
  - DISEASE PROGRESSION [None]
  - DYSPNOEA [None]
  - PLATELET COUNT DECREASED [None]
  - RESTLESSNESS [None]
  - STOMATITIS [None]
  - WHITE BLOOD CELL COUNT DECREASED [None]
